FAERS Safety Report 6474427-0 (Version None)
Quarter: 2009Q4

REPORT INFORMATION
  Report Type: 
  Country: None (occurrence: None)
  Receive Date: 20091204
  Receipt Date: 20091127
  Transmission Date: 20100525
  Serious: Yes (Other)
  Sender: FDA-Public Use
  Company Number: BR-ELI_LILLY_AND_COMPANY-BR200910003805

PATIENT
  Age: 57 Year
  Sex: Male
  Weight: 95 kg

DRUGS (6)
  1. BYETTA [Suspect]
     Dosage: 5 UG, 2/D
     Route: 058
     Dates: start: 20090701
  2. BYETTA [Suspect]
     Dosage: 5 UG, DAILY (1/D)
     Route: 058
  3. LEVEMIR [Concomitant]
     Dosage: 68 IU, UNKNOWN
     Route: 065
  4. LEVEMIR [Concomitant]
     Dosage: 60 IU, UNKNOWN
     Route: 065
  5. NOVORAPID [Concomitant]
     Dosage: 10 IU, UNKNOWN
     Route: 065
  6. NOVORAPID [Concomitant]
     Dosage: 5 IU, UNKNOWN
     Route: 065

REACTIONS (3)
  - HYPOGLYCAEMIA [None]
  - OFF LABEL USE [None]
  - SYNCOPE [None]
